FAERS Safety Report 6739148-5 (Version None)
Quarter: 2010Q2

REPORT INFORMATION
  Report Type: 
  Country: None (occurrence: None)
  Receive Date: 20100525
  Receipt Date: 20100519
  Transmission Date: 20101027
  Serious: Yes (Death)
  Sender: FDA-Public Use
  Company Number: SK-CELGENEUS-260-50794-10050305

PATIENT
  Age: 73 Year
  Sex: Female

DRUGS (1)
  1. VIDAZA [Suspect]
     Route: 050
     Dates: start: 20100301, end: 20100301

REACTIONS (2)
  - ACUTE MYELOID LEUKAEMIA [None]
  - MALIGNANT NEOPLASM PROGRESSION [None]
